FAERS Safety Report 8912355 (Version 2)
Quarter: 2014Q2

REPORT INFORMATION
  Report Type: Spontaneous
  Country: US (occurrence: US)
  Receive Date: 20121115
  Receipt Date: 20131018
  Transmission Date: 20141212
  Serious: Yes (Other)
  Sender: FDA-Public Use
  Company Number: US-PFIZER INC-2012281329

PATIENT
  Sex: Female
  Weight: 3.4 kg

DRUGS (1)
  1. CHLORAMPHENICOL SODIUM SUCCINATE [Suspect]
     Indication: ESCHERICHIA BACTERAEMIA
     Dosage: 25 MG/KG, 1X/DAY
     Route: 042

REACTIONS (11)
  - Wrong technique in drug usage process [Recovered/Resolved]
  - Grey syndrome neonatal [Recovered/Resolved]
  - Apnoea [Recovered/Resolved]
  - Depressed level of consciousness [Recovered/Resolved]
  - Cardio-respiratory arrest [Recovered/Resolved]
  - Coma [Recovered/Resolved]
  - Urine output decreased [Recovered/Resolved]
  - Bradycardia [Recovered/Resolved]
  - Metabolic acidosis [Recovered/Resolved]
  - Hepatic function abnormal [Recovered/Resolved]
  - Hepatomegaly [Recovered/Resolved]
